FAERS Safety Report 24085091 (Version 2)
Quarter: 2024Q3

REPORT INFORMATION
  Report Type: Spontaneous
  Country: US (occurrence: US)
  Receive Date: 20240712
  Receipt Date: 20240816
  Transmission Date: 20241016
  Serious: No
  Sender: VERTEX
  Company Number: US-VERTEX PHARMACEUTICALS-2024-011271

PATIENT
  Age: 32 Year
  Sex: Female

DRUGS (2)
  1. TRIKAFTA [Suspect]
     Active Substance: ELEXACAFTOR\IVACAFTOR\TEZACAFTOR
     Indication: Cystic fibrosis
     Dosage: HALF DOSE
     Route: 048
     Dates: start: 2021
  2. TRIKAFTA [Suspect]
     Active Substance: ELEXACAFTOR\IVACAFTOR\TEZACAFTOR
     Dosage: ONE PILL A DAY
     Route: 048

REACTIONS (9)
  - Depersonalisation/derealisation disorder [Recovering/Resolving]
  - Yawning [Unknown]
  - Bradyphrenia [Recovering/Resolving]
  - Aphasia [Recovering/Resolving]
  - Brain fog [Recovering/Resolving]
  - Disturbance in attention [Recovering/Resolving]
  - Poor quality sleep [Recovering/Resolving]
  - Anxiety [Recovering/Resolving]
  - Pneumonia [Unknown]
